FAERS Safety Report 4986080-3 (Version None)
Quarter: 2006Q1

REPORT INFORMATION
  Report Type: 
  Country: None (occurrence: None)
  Receive Date: 20060309
  Receipt Date: 20050425
  Transmission Date: 20060701
  Serious: Yes (Other)
  Sender: FDA-Public Use
  Company Number: 374313

PATIENT
  Sex: Male
  Weight: 3.3 kg

DRUGS (3)
  1. ISOTRETINOIN [Suspect]
     Indication: RASH PUSTULAR
     Dosage: 10 MG DAILY ORAL
     Route: 048
     Dates: start: 20040505, end: 20040529
  2. VALETTE (DIENOGEST/ETHINYL ESTRADIOL) [Concomitant]
  3. CONTRACEPTIVE NOS (CONTRACEPTIVE NOS) [Concomitant]

REACTIONS (2)
  - NO ADVERSE EFFECT [None]
  - PREGNANCY [None]
